FAERS Safety Report 24267691 (Version 1)
Quarter: 2024Q3

REPORT INFORMATION
  Report Type: Spontaneous
  Country: US (occurrence: US)
  Receive Date: 20240830
  Receipt Date: 20240830
  Transmission Date: 20241017
  Serious: Yes (Other)
  Sender: PFIZER
  Company Number: US-PFIZER INC-202400245058

PATIENT
  Age: 67 Year
  Sex: Male

DRUGS (1)
  1. INLYTA [Suspect]
     Active Substance: AXITINIB
     Dosage: TAKE 1 TABLET TWICE A DAY
     Dates: start: 20240806

REACTIONS (4)
  - Blood pressure increased [Unknown]
  - Dysphonia [Not Recovered/Not Resolved]
  - Urticaria [Unknown]
  - Pruritus [Unknown]
